FAERS Safety Report 12709462 (Version 1)
Quarter: 2016Q3

REPORT INFORMATION
  Report Type: Spontaneous
  Country: US (occurrence: None)
  Receive Date: 20160901
  Receipt Date: 20160901
  Transmission Date: 20161109
  Serious: Yes (Hospitalization)
  Sender: FDA-Public Use
  Company Number: None

PATIENT
  Age: 58 Year
  Sex: Female
  Weight: 108 kg

DRUGS (3)
  1. NIVOLUMAB, 100MG [Suspect]
     Active Substance: NIVOLUMAB
     Indication: METASTATIC NEOPLASM
     Dosage: 300 MG EVERY 14 DAYS INTRAVENOUS (NOT OTHERWISE SPECIFIED)
     Route: 042
     Dates: start: 20160808, end: 20160822
  2. LOSARTAN AND HYDROCHLOROTHIAZIDE [Concomitant]
     Active Substance: HYDROCHLOROTHIAZIDE\LOSARTAN POTASSIUM
  3. ATENOLOL. [Concomitant]
     Active Substance: ATENOLOL

REACTIONS (13)
  - Fall [None]
  - Urinary tract infection [None]
  - Nephritis [None]
  - Infrequent bowel movements [None]
  - Haemoglobin decreased [None]
  - Tumour lysis syndrome [None]
  - Prerenal failure [None]
  - Acute kidney injury [None]
  - Renal tubular necrosis [None]
  - Inappropriate antidiuretic hormone secretion [None]
  - Hypotension [None]
  - Asthenia [None]
  - Dehydration [None]

NARRATIVE: CASE EVENT DATE: 20160825
